FAERS Safety Report 9631376 (Version 1)
Quarter: 2013Q4

REPORT INFORMATION
  Report Type: Not Available
  Country: GB (occurrence: GB)
  Receive Date: 20131018
  Receipt Date: 20131018
  Transmission Date: 20140711
  Serious: Yes (Other)
  Sender: FDA-Public Use
  Company Number: GB-NAPPMUNDI-GBR-2013-0016029

PATIENT
  Age: 61 Year
  Sex: Female
  Weight: 80 kg

DRUGS (4)
  1. OXYCODONE HCL [Suspect]
     Indication: ANALGESIC THERAPY
     Dosage: 10 MG, UNK
     Route: 048
     Dates: start: 20120730, end: 20120731
  2. AMLODIPINE [Concomitant]
  3. CANDESARTAN [Concomitant]
  4. ROSUVASTATIN [Concomitant]
     Dosage: UNK

REACTIONS (1)
  - Urinary retention [Recovered/Resolved]
